FAERS Safety Report 4599356-9 (Version None)
Quarter: 2005Q1

REPORT INFORMATION
  Report Type: 
  Country: None (occurrence: None)
  Receive Date: 20050302
  Receipt Date: 20050302
  Transmission Date: 20050727
  Serious: Yes (Other)
  Sender: FDA-Public Use
  Company Number: None

PATIENT
  Age: 14 Year
  Sex: Male
  Weight: 51.4379 kg

DRUGS (2)
  1. NEURONTIN [Suspect]
     Indication: AFFECTIVE DISORDER
     Dosage: 400 MG  4 X DAILY
  2. NEURONTIN [Suspect]
     Indication: ANGER
     Dosage: 400 MG  4 X DAILY

REACTIONS (3)
  - ABNORMAL BEHAVIOUR [None]
  - AGITATION [None]
  - PHARMACEUTICAL PRODUCT COMPLAINT [None]
